FAERS Safety Report 4723911-6 (Version None)
Quarter: 2005Q3

REPORT INFORMATION
  Report Type: 
  Country: None (occurrence: None)
  Receive Date: 20050722
  Receipt Date: 20050708
  Transmission Date: 20060218
  Serious: Yes (Hospitalization, Other)
  Sender: FDA-Public Use
  Company Number: 2005066729

PATIENT
  Sex: Female

DRUGS (1)
  1. CELEBREX [Suspect]
     Indication: OSTEOARTHRITIS
     Dosage: ORAL
     Route: 048
     Dates: start: 19990401, end: 20010801

REACTIONS (13)
  - ACQUIRED OESOPHAGEAL WEB [None]
  - ARTHRALGIA [None]
  - ASTHENIA [None]
  - DEHYDRATION [None]
  - DIARRHOEA [None]
  - DIFFICULTY IN WALKING [None]
  - DIVERTICULUM [None]
  - DYSSTASIA [None]
  - GAIT DISTURBANCE [None]
  - GASTROINTESTINAL HAEMORRHAGE [None]
  - NAUSEA [None]
  - PAIN [None]
  - THROAT TIGHTNESS [None]
